FAERS Safety Report 4815151-7 (Version None)
Quarter: 2005Q4

REPORT INFORMATION
  Report Type: 
  Country: None (occurrence: None)
  Receive Date: 20051027
  Receipt Date: 20051014
  Transmission Date: 20060501
  Serious: Yes (Other)
  Sender: FDA-Public Use
  Company Number: 2005142077

PATIENT
  Age: 46 Year
  Sex: Male
  Weight: 63.5036 kg

DRUGS (1)
  1. LISTERINE (MENTHOL, METHYL SALICYLATE, EUCALYPTOL, THYMOL) [Suspect]
     Dosage: ALMOST 1 PINT PER DAY, ORAL
     Route: 048

REACTIONS (4)
  - ASTHENIA [None]
  - INTENTIONAL DRUG MISUSE [None]
  - ORAL INTAKE REDUCED [None]
  - RECTAL HAEMORRHAGE [None]
